FAERS Safety Report 11719019 (Version 1)
Quarter: 2015Q4

REPORT INFORMATION
  Report Type: Report from Study
  Country: NL (occurrence: NL)
  Receive Date: 20151110
  Receipt Date: 20151110
  Transmission Date: 20160304
  Serious: Yes (Hospitalization)
  Sender: FDA-Public Use
  Company Number: NL-ROCHE-1655519

PATIENT
  Age: 61 Year
  Sex: Female

DRUGS (5)
  1. CARMUSTINE [Suspect]
     Active Substance: CARMUSTINE
     Indication: MALIGNANT LYMPHOID NEOPLASM
     Dosage: DATE OF LAST DOSE PRIOR TO SAE: 08/JUL/2015
     Route: 065
     Dates: start: 20150708
  2. RITUXIMAB [Suspect]
     Active Substance: RITUXIMAB
     Indication: MALIGNANT LYMPHOID NEOPLASM
     Dosage: DATE OF LAST DOSE PRIOR TO SAE: 25/JUL/2015
     Route: 042
     Dates: start: 20150704
  3. TENIPOSIDE. [Suspect]
     Active Substance: TENIPOSIDE
     Indication: MALIGNANT LYMPHOID NEOPLASM
     Dosage: DATE OF LAST DOSE PRIOR TO SAE: 07/JUL/2015
     Route: 065
     Dates: start: 20150706
  4. PREDNISOLONE. [Suspect]
     Active Substance: PREDNISOLONE
     Indication: MALIGNANT LYMPHOID NEOPLASM
     Dosage: DATE OF LAST DOSE PRIOR TO SAE: 09/JUL/2015
     Route: 065
     Dates: start: 20150705
  5. METHOTREXATE [Suspect]
     Active Substance: METHOTREXATE
     Indication: MALIGNANT LYMPHOID NEOPLASM
     Dosage: DATE LAST DOSE PRIOR TO SAE: 19/JUL/2015
     Route: 065
     Dates: start: 20150705

REACTIONS (1)
  - Pulmonary embolism [Recovered/Resolved]

NARRATIVE: CASE EVENT DATE: 20150803
